FAERS Safety Report 11572338 (Version 2)
Quarter: 2015Q4

REPORT INFORMATION
  Report Type: Spontaneous
  Country: US (occurrence: US)
  Receive Date: 20150916
  Receipt Date: 20151104
  Transmission Date: 20160304
  Serious: No
  Sender: FDA-Public Use
  Company Number: US-ELI_LILLY_AND_COMPANY-US200910002177

PATIENT
  Age: 72 Year
  Sex: Male

DRUGS (1)
  1. FORTEO [Suspect]
     Active Substance: TERIPARATIDE
     Indication: OSTEOPOROSIS
     Dosage: 20 UG, DAILY (1/D)
     Dates: end: 201003

REACTIONS (8)
  - Bone disorder [Unknown]
  - Prostatomegaly [Unknown]
  - Urinary tract infection [Unknown]
  - Musculoskeletal stiffness [Unknown]
  - Muscle spasms [Recovered/Resolved]
  - Musculoskeletal discomfort [Recovered/Resolved]
  - Pain [Unknown]
  - Decreased activity [Unknown]

NARRATIVE: CASE EVENT DATE: 201003
